FAERS Safety Report 7293762-X (Version None)
Quarter: 2011Q1

REPORT INFORMATION
  Report Type: 
  Country: None (occurrence: None)
  Receive Date: 20110202
  Receipt Date: 20110121
  Transmission Date: 20110831
  Serious: Yes (Hospitalization)
  Sender: FDA-Public Use
  Company Number: JPI-P-013590

PATIENT
  Age: 44 Year
  Sex: Male

DRUGS (12)
  1. LITHIUM CARBONATE [Concomitant]
  2. XYREM [Suspect]
     Indication: NARCOLEPSY
     Dosage: ORAL; 9 MG (4.5 GM,2 IN 1 D), ORAL
     Route: 048
     Dates: start: 20090401
  3. XYREM [Suspect]
     Indication: SOMNOLENCE
     Dosage: ORAL; 9 MG (4.5 GM,2 IN 1 D), ORAL
     Route: 048
     Dates: start: 20090401
  4. XYREM [Suspect]
     Indication: SLEEP APNOEA SYNDROME
     Dosage: ORAL; 9 MG (4.5 GM,2 IN 1 D), ORAL
     Route: 048
     Dates: start: 20090401
  5. XYREM [Suspect]
     Indication: NARCOLEPSY
     Dosage: ORAL; 9 MG (4.5 GM,2 IN 1 D), ORAL
     Route: 048
     Dates: start: 20110101
  6. XYREM [Suspect]
     Indication: SOMNOLENCE
     Dosage: ORAL; 9 MG (4.5 GM,2 IN 1 D), ORAL
     Route: 048
     Dates: start: 20110101
  7. XYREM [Suspect]
     Indication: SLEEP APNOEA SYNDROME
     Dosage: ORAL; 9 MG (4.5 GM,2 IN 1 D), ORAL
     Route: 048
     Dates: start: 20110101
  8. ARMODAFINIL [Concomitant]
  9. MULTIGEN [Concomitant]
  10. SIMVASTATIN [Concomitant]
  11. AMLODIPINE BESYLATE AND BENAZEPRIL HYDROCHLORIDE [Concomitant]
  12. PAROXETINE HCL [Concomitant]

REACTIONS (3)
  - ENDOCARDITIS [None]
  - VOMITING [None]
  - DIZZINESS [None]
